FAERS Safety Report 11344751 (Version 1)
Quarter: 2015Q3

REPORT INFORMATION
  Report Type: Spontaneous
  Country: FR (occurrence: FR)
  Receive Date: 20150806
  Receipt Date: 20150806
  Transmission Date: 20151125
  Serious: Yes (Hospitalization, Other)
  Sender: FDA-Public Use
  Company Number: FR-GLAXOSMITHKLINE-B0657475A

PATIENT
  Age: 72 Year
  Sex: Female

DRUGS (8)
  1. DEROXAT [Suspect]
     Active Substance: PAROXETINE HYDROCHLORIDE
     Indication: DYSTHYMIC DISORDER
     Route: 048
     Dates: start: 2004, end: 2008
  2. DAFLON [Concomitant]
     Active Substance: DIOSMIN\HESPERIDIN
     Route: 065
  3. HERCEPTIN [Concomitant]
     Active Substance: TRASTUZUMAB
     Indication: BREAST CANCER
     Route: 065
  4. FORLAX [Concomitant]
     Active Substance: POLYETHYLENE GLYCOL 4000
     Indication: CONSTIPATION
     Route: 048
  5. ZALDIAR [Concomitant]
     Active Substance: ACETAMINOPHEN\TRAMADOL HYDROCHLORIDE
     Indication: BACK PAIN
     Route: 048
  6. ELISOR [Concomitant]
     Active Substance: PRAVASTATIN SODIUM
     Indication: HYPERCHOLESTEROLAEMIA
     Route: 048
  7. RIVOTRIL [Concomitant]
     Active Substance: CLONAZEPAM
     Indication: BACK PAIN
     Route: 048
  8. AGREAL [Interacting]
     Active Substance: VERALIPRIDE
     Indication: MENOPAUSE
     Route: 048
     Dates: start: 20060315, end: 200703

REACTIONS (18)
  - Cogwheel rigidity [Unknown]
  - Extrapyramidal disorder [Recovered/Resolved]
  - Withdrawal syndrome [Not Recovered/Not Resolved]
  - Vomiting [Unknown]
  - Akinesia [Unknown]
  - Language disorder [Unknown]
  - Depression [Unknown]
  - Drug interaction [Unknown]
  - Dyskinesia [Recovered/Resolved with Sequelae]
  - Bradykinesia [Unknown]
  - Weight decreased [Unknown]
  - Sleep disorder [Unknown]
  - Parkinsonian gait [Unknown]
  - Parkinsonism [Recovered/Resolved]
  - Morbid thoughts [Unknown]
  - Balance disorder [Unknown]
  - Memory impairment [Unknown]
  - Tremor [Recovering/Resolving]

NARRATIVE: CASE EVENT DATE: 2006
